FAERS Safety Report 5420176-7 (Version None)
Quarter: 2007Q3

REPORT INFORMATION
  Report Type: 
  Country: None (occurrence: None)
  Receive Date: 20070820
  Receipt Date: 20070813
  Transmission Date: 20080115
  Serious: Yes (Other)
  Sender: FDA-Public Use
  Company Number: FR-BOEHRINGER INGELHEIM PHARMACEUTICALS, INC.-2007-DE-04789GD

PATIENT
  Sex: Female

DRUGS (3)
  1. VIRAMUNE [Suspect]
     Indication: HIV INFECTION
     Dates: start: 19961201, end: 20050701
  2. ZIDOVUDINE [Suspect]
     Indication: HIV INFECTION
     Dates: start: 19961201, end: 20050701
  3. DIDANOSINE [Suspect]
     Indication: HIV INFECTION
     Dates: start: 19961201, end: 20050701

REACTIONS (12)
  - ABDOMINAL PAIN [None]
  - ASCITES [None]
  - CHOLESTASIS [None]
  - CYTOLYTIC HEPATITIS [None]
  - HEPATIC FAILURE [None]
  - HEPATOMEGALY [None]
  - HEPATOTOXICITY [None]
  - NODULAR REGENERATIVE HYPERPLASIA [None]
  - PORTAL HYPERTENSION [None]
  - SPLENOMEGALY [None]
  - THROMBOCYTOPENIA [None]
  - VARICES OESOPHAGEAL [None]
